FAERS Safety Report 9891276 (Version 1)
Quarter: 2014Q1

REPORT INFORMATION
  Report Type: Spontaneous
  Country: FR (occurrence: FR)
  Receive Date: 20140212
  Receipt Date: 20140212
  Transmission Date: 20141002
  Serious: Yes (Other)
  Sender: FDA-Public Use
  Company Number: FR-UCBSA-111777

PATIENT
  Sex: Female

DRUGS (2)
  1. CIMZIA [Suspect]
     Route: 058
  2. CIMZIA [Suspect]
     Route: 058
     Dates: start: 201401, end: 201401

REACTIONS (4)
  - Upper respiratory tract infection [Recovered/Resolved]
  - Lung disorder [Recovered/Resolved]
  - Sinusitis [Recovered/Resolved]
  - Urinary tract infection [Recovered/Resolved]
